FAERS Safety Report 5135455-0 (Version None)
Quarter: 2006Q4

REPORT INFORMATION
  Report Type: 
  Country: None (occurrence: None)
  Receive Date: 20061024
  Receipt Date: 20061024
  Transmission Date: 20070319
  Serious: Yes (Hospitalization)
  Sender: FDA-Public Use
  Company Number: None

PATIENT
  Age: 73 Year
  Sex: Male
  Weight: 53.3 kg

DRUGS (8)
  1. WARFARIN SODIUM [Suspect]
     Indication: TRANSIENT ISCHAEMIC ATTACK
     Dosage: 2.5 MG M+F 5 MG ALL OTHER DAYS
     Dates: start: 20060614, end: 20060701
  2. METAPROTERENOL [Concomitant]
  3. ALBUTEROL 90/IPRATROP 18 MCG [Concomitant]
  4. ENALAPRIL MALEATE [Concomitant]
  5. VERAPAMIL HCL [Concomitant]
  6. ALBUTEROL [Concomitant]
  7. LOVASTATIN [Concomitant]
  8. OMEPRAZOLE [Concomitant]

REACTIONS (1)
  - GASTROINTESTINAL HAEMORRHAGE [None]
